FAERS Safety Report 7849368-4 (Version None)
Quarter: 2011Q4

REPORT INFORMATION
  Report Type: 
  Country: None (occurrence: None)
  Receive Date: 20111021
  Receipt Date: 20111010
  Transmission Date: 20120403
  Serious: Yes (Hospitalization)
  Sender: FDA-Public Use
  Company Number: 2011-4144

PATIENT
  Age: 21 Year
  Sex: Male

DRUGS (1)
  1. SOMATULINE DEPOT [Suspect]
     Indication: ACROMEGALY
     Dosage: 120 MG (120 MG, 1 IN 28 D),SUBCUTANEOUS
     Route: 058
     Dates: start: 20110404

REACTIONS (3)
  - BALANCE DISORDER [None]
  - PITUITARY TUMOUR REMOVAL [None]
  - ABASIA [None]
